FAERS Safety Report 19942442 (Version 1)
Quarter: 2021Q4

REPORT INFORMATION
  Report Type: Spontaneous
  Country: US (occurrence: US)
  Receive Date: 20211008
  Receipt Date: 20211008
  Transmission Date: 20220303
  Serious: Yes (Life-Threatening, Disabling)
  Sender: FDA-Public Use
  Company Number: None

PATIENT
  Age: 49 Year
  Sex: Female
  Weight: 63 kg

DRUGS (1)
  1. CIPROFLOXACIN [Suspect]
     Active Substance: CIPROFLOXACIN
     Indication: Urinary tract infection
     Route: 048

REACTIONS (10)
  - Disability [None]
  - Heart rate irregular [None]
  - Neutropenia [None]
  - Tendon disorder [None]
  - Nervous system disorder [None]
  - Neuropathy peripheral [None]
  - Visual impairment [None]
  - Hyperacusis [None]
  - Gastrointestinal injury [None]
  - Pain [None]

NARRATIVE: CASE EVENT DATE: 20211008
